FAERS Safety Report 8834607 (Version 3)
Quarter: 2013Q1

REPORT INFORMATION
  Report Type: Spontaneous
  Country: JP (occurrence: JP)
  Receive Date: 20121010
  Receipt Date: 20130311
  Transmission Date: 20140127
  Serious: Yes (Hospitalization)
  Sender: FDA-Public Use
  Company Number: JP-JNJFOC-20121004396

PATIENT
  Age: 59 Year
  Sex: Female

DRUGS (4)
  1. NAUZELIN [Suspect]
     Indication: PYREXIA
     Route: 048
     Dates: start: 201202, end: 201202
  2. ACETAMINOPHEN [Suspect]
     Route: 048
  3. ACETAMINOPHEN [Suspect]
     Indication: PYREXIA
     Route: 048
     Dates: start: 201202, end: 201202
  4. SITAFLOXACIN [Suspect]
     Indication: PYREXIA
     Route: 048
     Dates: start: 201202, end: 201202

REACTIONS (1)
  - Tubulointerstitial nephritis [Unknown]
